FAERS Safety Report 8154023-X (Version None)
Quarter: 2012Q1

REPORT INFORMATION
  Report Type: 
  Country: None (occurrence: None)
  Receive Date: 20120221
  Receipt Date: 20120221
  Transmission Date: 20120608
  Serious: No
  Sender: FDA-Public Use
  Company Number: None

PATIENT
  Age: 60 Year
  Sex: Male
  Weight: 109.31 kg

DRUGS (2)
  1. METFORMIN HCL [Concomitant]
     Indication: DIABETES MELLITUS
     Dosage: 1000MG TAB
     Route: 048
     Dates: start: 20120213, end: 20120220
  2. GLIPIZIDE [Suspect]
     Indication: DIABETES MELLITUS
     Dosage: 5MG TAB
     Route: 048
     Dates: start: 20081101, end: 20120220

REACTIONS (3)
  - SOMNOLENCE [None]
  - HALLUCINATION [None]
  - FALL [None]
